FAERS Safety Report 5287917-3 (Version None)
Quarter: 2007Q1

REPORT INFORMATION
  Report Type: 
  Country: None (occurrence: None)
  Receive Date: 20070330
  Receipt Date: 20070316
  Transmission Date: 20070707
  Serious: Yes (Hospitalization)
  Sender: FDA-Public Use
  Company Number: 2007PV031819

PATIENT
  Age: 69 Year
  Sex: Male
  Weight: 145.151 kg

DRUGS (21)
  1. BYETTA [Suspect]
     Indication: GLUCOSE TOLERANCE IMPAIRED
     Dosage: SEE IMAGE
     Route: 058
     Dates: start: 20060501, end: 20060501
  2. BYETTA [Suspect]
     Indication: WEIGHT DECREASED
     Dosage: SEE IMAGE
     Route: 058
     Dates: start: 20060501, end: 20060501
  3. BYETTA [Suspect]
     Indication: GLUCOSE TOLERANCE IMPAIRED
     Dosage: SEE IMAGE
     Route: 058
     Dates: start: 20070201, end: 20070201
  4. BYETTA [Suspect]
     Indication: WEIGHT DECREASED
     Dosage: SEE IMAGE
     Route: 058
     Dates: start: 20070201, end: 20070201
  5. BYETTA [Suspect]
     Indication: GLUCOSE TOLERANCE IMPAIRED
     Dosage: SEE IMAGE
     Route: 058
     Dates: start: 20070301
  6. BYETTA [Suspect]
     Indication: WEIGHT DECREASED
     Dosage: SEE IMAGE
     Route: 058
     Dates: start: 20070301
  7. TYLENOL [Suspect]
     Indication: ARTHRALGIA
     Dosage: 650 MG; PO
     Route: 048
  8. TYLENOL [Suspect]
     Indication: BACK PAIN
     Dosage: 650 MG; PO
     Route: 048
  9. LISINOPRIL [Suspect]
     Indication: BLOOD PRESSURE
     Dosage: PO
     Route: 048
  10. VICODIN [Suspect]
     Indication: ARTHRALGIA
     Dosage: 750 MG
  11. VICODIN [Suspect]
     Indication: BACK PAIN
     Dosage: 750 MG
  12. NEXIUM [Concomitant]
  13. ALLOPURINOL [Concomitant]
  14. COLCHICINE [Concomitant]
  15. LEVOTHYROXINE SODIUM [Concomitant]
  16. METAXALONE [Concomitant]
  17. FUROSEMIDE [Concomitant]
  18. POTASSIUM ACETATE [Concomitant]
  19. TESTIM GEL [Concomitant]
  20. TRAMADOL HCL [Concomitant]
  21. FENTANYL [Concomitant]

REACTIONS (7)
  - DYSPNOEA [None]
  - ERYTHEMA [None]
  - INSOMNIA [None]
  - RASH MACULAR [None]
  - RENAL FAILURE [None]
  - SKIN BURNING SENSATION [None]
  - WEIGHT DECREASED [None]
